FAERS Safety Report 5529327-7 (Version None)
Quarter: 2007Q4

REPORT INFORMATION
  Report Type: 
  Country: None (occurrence: None)
  Receive Date: 20071129
  Receipt Date: 20071121
  Transmission Date: 20080405
  Serious: Yes (Hospitalization)
  Sender: FDA-Public Use
  Company Number: IT-MERCK-0711ITA00022

PATIENT
  Age: 55 Year
  Sex: Male

DRUGS (1)
  1. COZAAR [Suspect]
     Indication: HYPERTENSIVE CRISIS
     Route: 065
     Dates: start: 20040101, end: 20040101

REACTIONS (1)
  - PEMPHIGOID [None]
